FAERS Safety Report 11461673 (Version 1)
Quarter: 2015Q3

REPORT INFORMATION
  Report Type: Spontaneous
  Country: US (occurrence: US)
  Receive Date: 20150831
  Receipt Date: 20150831
  Transmission Date: 20151125
  Serious: No
  Sender: FDA-Public Use
  Company Number: US-ELI_LILLY_AND_COMPANY-US200908004444

PATIENT
  Age: 26 Year
  Sex: Female

DRUGS (1)
  1. CYMBALTA [Suspect]
     Active Substance: DULOXETINE HYDROCHLORIDE
     Indication: PANIC ATTACK
     Dosage: 30 MG, DAILY (1/D)
     Dates: start: 20090818

REACTIONS (6)
  - Feeling abnormal [Unknown]
  - Influenza like illness [Unknown]
  - Nausea [Unknown]
  - Sleep disorder [Unknown]
  - Abdominal discomfort [Unknown]
  - Feeling jittery [Unknown]

NARRATIVE: CASE EVENT DATE: 200908
